FAERS Safety Report 5646890-6 (Version None)
Quarter: 2008Q1

REPORT INFORMATION
  Report Type: 
  Country: None (occurrence: None)
  Receive Date: 20080228
  Receipt Date: 20080212
  Transmission Date: 20080703
  Serious: Yes (Death, Hospitalization, Disabling, Other)
  Sender: FDA-Public Use
  Company Number: 013-C5013-08020666

PATIENT
  Age: 69 Year
  Sex: Male
  Weight: 75 kg

DRUGS (7)
  1. CC-5013 (LENALIDOMIDE) (CAPSULES) [Suspect]
     Indication: MULTIPLE MYELOMA
     Dosage: 25 MG, DAILY, ORAL : 15 MG, DAILY, ORAL
     Route: 048
     Dates: start: 20080102, end: 20080122
  2. CC-5013 (LENALIDOMIDE) (CAPSULES) [Suspect]
     Indication: MULTIPLE MYELOMA
     Dosage: 25 MG, DAILY, ORAL : 15 MG, DAILY, ORAL
     Route: 048
     Dates: start: 20080124, end: 20080204
  3. ZANAX (ALPRAZOLAM) [Concomitant]
  4. DIFLUCAN [Concomitant]
  5. FRAXIPARIN (HEPARIN-FRACTION, CALCIUM SALT) [Concomitant]
  6. ACETAMINOPHEN [Concomitant]
  7. DURAGESIC-100 [Concomitant]

REACTIONS (3)
  - DISEASE PROGRESSION [None]
  - RENAL FAILURE [None]
  - SEPSIS [None]
